FAERS Safety Report 10347318 (Version 1)
Quarter: 2014Q3

REPORT INFORMATION
  Report Type: Spontaneous
  Country: US (occurrence: US)
  Receive Date: 20140729
  Receipt Date: 20140729
  Transmission Date: 20150326
  Serious: No
  Sender: FDA-Public Use
  Company Number: US-PFIZER INC-2014210023

PATIENT
  Age: 57 Year
  Sex: Female

DRUGS (5)
  1. CELEBREX [Suspect]
     Active Substance: CELECOXIB
     Indication: ARTHRITIS
  2. TYLENOL [Suspect]
     Active Substance: ACETAMINOPHEN
  3. LISINOPRIL. [Suspect]
     Active Substance: LISINOPRIL
  4. ASA [Suspect]
     Active Substance: ASPIRIN
  5. PROZAC [Suspect]
     Active Substance: FLUOXETINE HYDROCHLORIDE

REACTIONS (1)
  - Drug hypersensitivity [Unknown]
